FAERS Safety Report 20547782 (Version 1)
Quarter: 2022Q1

REPORT INFORMATION
  Report Type: Spontaneous
  Country: None (occurrence: CN)
  Receive Date: 20220303
  Receipt Date: 20220303
  Transmission Date: 20220423
  Serious: Yes (Other)
  Sender: FDA-Public Use
  Company Number: CN-B.Braun Medical Inc.-2126420

PATIENT
  Age: 76 Year
  Sex: Female
  Weight: 57 kg

DRUGS (7)
  1. NUTRILIPID I.V. FAT EMULSION [Suspect]
     Active Substance: SOYBEAN OIL
  2. ASPIRIN [Concomitant]
     Active Substance: ASPIRIN
  3. Nifedipine controlled release tablets [Concomitant]
  4. Insulin glargine injection [Concomitant]
  5. ROSUVASTATIN CALCIUM [Concomitant]
     Active Substance: ROSUVASTATIN CALCIUM
  6. nitrendipine tablets [Concomitant]
  7. CAPTOPRIL [Concomitant]
     Active Substance: CAPTOPRIL

REACTIONS (1)
  - Liver injury [Recovering/Resolving]
